FAERS Safety Report 22307786 (Version 1)
Quarter: 2023Q2

REPORT INFORMATION
  Report Type: Spontaneous
  Country: US (occurrence: None)
  Receive Date: 20230511
  Receipt Date: 20230511
  Transmission Date: 20230721
  Serious: No
  Sender: FDA-Public Use
  Company Number: US-ROCHE-3145115

PATIENT
  Sex: Male

DRUGS (1)
  1. OCREVUS [Suspect]
     Active Substance: OCRELIZUMAB
     Indication: Multiple sclerosis
     Dosage: INFUSE 600 MG IN 500 ML 0.9% NORMAL SALINE IV AT 40ML/HR + INCREASE BY 40ML/HR EVERY 30 MINUTES (MAX
     Route: 042
     Dates: start: 202203

REACTIONS (1)
  - Headache [Unknown]
